FAERS Safety Report 4358627-1 (Version None)
Quarter: 2004Q2

REPORT INFORMATION
  Report Type: 
  Country: None (occurrence: None)
  Receive Date: 20040514
  Receipt Date: 20040514
  Transmission Date: 20050107
  Serious: Yes (Hospitalization)
  Sender: FDA-Public Use
  Company Number: None

PATIENT
  Age: 20 Year
  Sex: Female
  Weight: 55.8 kg

DRUGS (2)
  1. VINCRISTINE [Suspect]
     Indication: RHABDOMYOSARCOMA
     Dosage: 2 MG   1 DOSE   INTRAVENOUS
     Route: 042
     Dates: start: 20040409, end: 20040409
  2. CYCLOPHOSPHAMIDE [Suspect]
     Indication: METASTASES TO LUNG
     Dosage: 3,498 MG   1 DOSE    INTRAVENOUS
     Route: 042
     Dates: start: 20040409, end: 20040409

REACTIONS (9)
  - BLOOD PRESSURE DECREASED [None]
  - CHILLS [None]
  - EJECTION FRACTION DECREASED [None]
  - FUNGAL INFECTION [None]
  - HEADACHE [None]
  - MYALGIA [None]
  - PNEUMONIA BACTERIAL [None]
  - RESPIRATORY FAILURE [None]
  - THYROID MASS [None]
